FAERS Safety Report 17534542 (Version 2)
Quarter: 2020Q1

REPORT INFORMATION
  Report Type: Spontaneous
  Country: KR (occurrence: KR)
  Receive Date: 20200312
  Receipt Date: 20200323
  Transmission Date: 20200409
  Serious: Yes (Life-Threatening, Hospitalization, Other)
  Sender: FDA-Public Use
  Company Number: KR-JNJFOC-20200244456

PATIENT
  Age: 51 Year
  Sex: Male

DRUGS (1)
  1. PARACETAMOL [Suspect]
     Active Substance: ACETAMINOPHEN
     Indication: PRODUCT USED FOR UNKNOWN INDICATION
     Dosage: 279.6MG/KG; IN TOTAL
     Route: 048

REACTIONS (5)
  - Hepatic enzyme increased [Recovered/Resolved]
  - Hepatomegaly [Unknown]
  - Overdose [Unknown]
  - Procalcitonin increased [Unknown]
  - Hepatic steatosis [Unknown]
